FAERS Safety Report 13247401 (Version 1)
Quarter: 2017Q1

REPORT INFORMATION
  Report Type: Spontaneous
  Country: JP (occurrence: JP)
  Receive Date: 20170217
  Receipt Date: 20170217
  Transmission Date: 20170428
  Serious: Yes (Hospitalization)
  Sender: FDA-Public Use
  Company Number: JP-DSJP-DSJ-2017-105220

PATIENT

DRUGS (1)
  1. LIXIANA TABLETS [Suspect]
     Active Substance: EDOXABAN TOSILATE MONOHYDRATE
     Indication: ATRIAL FIBRILLATION
     Dosage: 60MG/DAY
     Route: 065

REACTIONS (2)
  - Hepatic neoplasm [Not Recovered/Not Resolved]
  - Drug administration error [Unknown]
